FAERS Safety Report 25404232 (Version 1)
Quarter: 2025Q2

REPORT INFORMATION
  Report Type: Spontaneous
  Country: US (occurrence: US)
  Receive Date: 20250606
  Receipt Date: 20250606
  Transmission Date: 20250716
  Serious: No
  Sender: ALEXION PHARMACEUTICALS
  Company Number: US-PROCTER+GAMBLE-PH25006696

PATIENT

DRUGS (2)
  1. PRILOSEC OTC [Suspect]
     Active Substance: OMEPRAZOLE MAGNESIUM
     Indication: Dyspepsia
     Dosage: 1 TABLET, MORNING, DAILY IN THE MORNING BEFORE A MEAL
  2. PRILOSEC OTC [Suspect]
     Active Substance: OMEPRAZOLE MAGNESIUM
     Dosage: 1 TABLET, MORNING, DAILY IN THE MORNING BEFORE A MEAL

REACTIONS (4)
  - Abdominal discomfort [Unknown]
  - Throat irritation [Unknown]
  - Vomiting [Unknown]
  - Drug ineffective [Unknown]
